FAERS Safety Report 5021991-4 (Version None)
Quarter: 2006Q2

REPORT INFORMATION
  Report Type: 
  Country: None (occurrence: None)
  Receive Date: 20060605
  Receipt Date: 20060522
  Transmission Date: 20061013
  Serious: No
  Sender: FDA-Public Use
  Company Number: US200605004795

PATIENT
  Age: 10 Year
  Sex: Female
  Weight: 34.7 kg

DRUGS (2)
  1. STRATTERA [Suspect]
     Indication: ATTENTION DEFICIT/HYPERACTIVITY DISORDER
     Dosage: 25 MG, DAILY (1/D)
     Dates: start: 20040401
  2. PREVACID [Concomitant]

REACTIONS (1)
  - ARRHYTHMIA [None]
